FAERS Safety Report 10903879 (Version 1)
Quarter: 2015Q1

REPORT INFORMATION
  Report Type: Spontaneous
  Country: US (occurrence: US)
  Receive Date: 20150311
  Receipt Date: 20150311
  Transmission Date: 20150721
  Serious: Yes (Hospitalization, Other)
  Sender: FDA-Public Use
  Company Number: US-AUROBINDO-AUR-APL-2015-02012

PATIENT
  Age: 65 Year
  Sex: Male

DRUGS (2)
  1. RIBAVIRIN. [Suspect]
     Active Substance: RIBAVIRIN
     Indication: CHRONIC HEPATITIS C
     Dosage: 1000 G, DAILY
     Route: 048
  2. PEGYLATED INTERFERON ALFA-2A [Suspect]
     Active Substance: PEGINTERFERON ALFA-2A
     Indication: CHRONIC HEPATITIS C
     Dosage: 180 MCG, EVERY WEEK
     Route: 058

REACTIONS (9)
  - Anaemia [Recovering/Resolving]
  - Respiratory distress [Recovering/Resolving]
  - Speech disorder [Recovering/Resolving]
  - Pyrexia [Recovering/Resolving]
  - Organising pneumonia [Recovering/Resolving]
  - Fatigue [Recovering/Resolving]
  - Crepitations [Recovering/Resolving]
  - Cough [Recovering/Resolving]
  - Dyspnoea [Recovering/Resolving]
